FAERS Safety Report 6915995-1 (Version None)
Quarter: 2010Q3

REPORT INFORMATION
  Report Type: 
  Country: None (occurrence: None)
  Receive Date: 20100809
  Receipt Date: 20100809
  Transmission Date: 20110219
  Serious: Yes (Disabling, Other)
  Sender: FDA-Public Use
  Company Number: None

PATIENT
  Age: 63 Year
  Sex: Female
  Weight: 58.0604 kg

DRUGS (1)
  1. METHYLINE BLUE [Suspect]
     Indication: SCAN LYMPH NODES
     Dosage: 5 CCS OF DILUTED ONCE OTHER
     Route: 050
     Dates: start: 20100526, end: 20100526

REACTIONS (4)
  - GANGRENE [None]
  - PROCEDURAL SITE REACTION [None]
  - SKIN DISCOLOURATION [None]
  - SOFT TISSUE INJURY [None]
